FAERS Safety Report 9016559 (Version 2)
Quarter: 2013Q1

REPORT INFORMATION
  Report Type: Spontaneous
  Country: US (occurrence: US)
  Receive Date: 20130117
  Receipt Date: 20130131
  Transmission Date: 20140127
  Serious: Yes (Hospitalization, Other)
  Sender: FDA-Public Use
  Company Number: US-BIOGENIDEC-2013BI002980

PATIENT
  Sex: Female

DRUGS (1)
  1. AVONEX [Suspect]
     Indication: MULTIPLE SCLEROSIS
     Route: 030
     Dates: start: 20020101

REACTIONS (10)
  - Transient ischaemic attack [Recovered/Resolved]
  - Cardiac disorder [Not Recovered/Not Resolved]
  - Hypertension [Recovered/Resolved]
  - Venous stenosis [Unknown]
  - Arterial stenosis [Unknown]
  - Decreased immune responsiveness [Not Recovered/Not Resolved]
  - Headache [Not Recovered/Not Resolved]
  - Asthenia [Not Recovered/Not Resolved]
  - Influenza like illness [Not Recovered/Not Resolved]
  - Musculoskeletal stiffness [Recovered/Resolved]
